FAERS Safety Report 17239658 (Version 1)
Quarter: 2020Q1

REPORT INFORMATION
  Report Type: Spontaneous
  Country: US (occurrence: US)
  Receive Date: 20200106
  Receipt Date: 20200106
  Transmission Date: 20200409
  Serious: Yes (Other)
  Sender: FDA-Public Use
  Company Number: US-MALLINCKRODT-T201908943

PATIENT
  Age: 8 Month
  Sex: Female

DRUGS (1)
  1. H.P. ACTHAR [Suspect]
     Active Substance: CORTICOTROPIN
     Indication: INFANTILE SPASMS
     Dosage: 0.38 ML 2 TIMES A DAY FOR 14 DAYS
     Route: 030
     Dates: start: 20191213

REACTIONS (6)
  - Fatigue [Unknown]
  - Diarrhoea [Not Recovered/Not Resolved]
  - Dermatitis diaper [Unknown]
  - Infantile spasms [Unknown]
  - Crying [Unknown]
  - Irritability [Unknown]

NARRATIVE: CASE EVENT DATE: 201912
